FAERS Safety Report 16768067 (Version 2)
Quarter: 2019Q3

REPORT INFORMATION
  Report Type: Spontaneous
  Country: JP (occurrence: JP)
  Receive Date: 20190903
  Receipt Date: 20190916
  Transmission Date: 20191005
  Serious: Yes (Death, Other)
  Sender: FDA-Public Use
  Company Number: JP-009507513-1908JPN013073

PATIENT
  Age: 85 Year
  Sex: Male

DRUGS (3)
  1. VANCOMYCIN [Concomitant]
     Active Substance: VANCOMYCIN
     Indication: CLOSTRIDIAL INFECTION
     Dosage: UNK UNK, UNKNOWN FREQ.
     Route: 065
  2. FIDAXOMICIN [Suspect]
     Active Substance: FIDAXOMICIN
     Indication: CLOSTRIDIUM DIFFICILE INFECTION
     Dosage: 200 MILLIGRAM, QD
     Route: 048
  3. LEVOFLOXACIN. [Concomitant]
     Active Substance: LEVOFLOXACIN
     Indication: PRODUCT USED FOR UNKNOWN INDICATION
     Dosage: UNK UNK, UNKNOWN FREQ.
     Route: 065

REACTIONS (2)
  - Enterocolitis [Fatal]
  - Prescribed underdose [Unknown]
